FAERS Safety Report 6912277-9 (Version None)
Quarter: 2010Q3

REPORT INFORMATION
  Report Type: 
  Country: None (occurrence: None)
  Receive Date: 20100806
  Receipt Date: 20080222
  Transmission Date: 20110219
  Serious: No
  Sender: FDA-Public Use
  Company Number: US-PFIZER INC-2008018278

PATIENT
  Sex: Male
  Weight: 90.9 kg

DRUGS (4)
  1. DILANTIN [Suspect]
     Indication: EPILEPSY
     Route: 048
     Dates: start: 19680101
  2. METOPROLOL [Concomitant]
     Indication: CARDIAC DISORDER
  3. FLECAINIDE ACETATE [Concomitant]
     Indication: CARDIAC DISORDER
  4. ALL OTHER THERAPEUTIC PRODUCTS [Concomitant]
     Indication: CARDIAC DISORDER

REACTIONS (4)
  - CONFUSIONAL STATE [None]
  - DIZZINESS [None]
  - HEADACHE [None]
  - NAUSEA [None]
